FAERS Safety Report 8849243 (Version 2)
Quarter: 2013Q2

REPORT INFORMATION
  Report Type: Spontaneous
  Country: US (occurrence: None)
  Receive Date: 20120426
  Receipt Date: 20120703
  Transmission Date: 20140414
  Serious: No
  Sender: FDA-Public Use
  Company Number: PHEH2012US004359

PATIENT
  Age: 49 Year
  Sex: Female

DRUGS (10)
  1. GILENYA [Suspect]
     Indication: RELAPSING-REMITTING MULTIPLE SCLEROSIS
     Route: 048
     Dates: start: 20120217, end: 20120220
  2. DOXYCYCLINE HYDROCHLORIDE [Concomitant]
  3. NIZATIDINE [Concomitant]
  4. PROZAC (FLUOXETINE HYDROCHLORIDE) [Concomitant]
  5. TRAZODONE [Concomitant]
  6. VITAMIN B COMPLEX [Concomitant]
  7. VITAMIN B12 (CYANOCOBALAMIN) [Concomitant]
  8. VITAMIN D [Concomitant]
  9. AXID [Concomitant]
  10. BETASERON [Concomitant]

REACTIONS (5)
  - Feeling abnormal [None]
  - Hypoacusis [None]
  - Palpitations [None]
  - Nervousness [None]
  - Feeling jittery [None]
